FAERS Safety Report 10560370 (Version 1)
Quarter: 2014Q4

REPORT INFORMATION
  Report Type: Spontaneous
  Country: US (occurrence: None)
  Receive Date: 20141031
  Receipt Date: 20141031
  Transmission Date: 20150529
  Serious: Yes (Life-Threatening)
  Sender: FDA-Public Use
  Company Number: None

PATIENT
  Age: 68 Year
  Sex: Male
  Weight: 85.2 kg

DRUGS (1)
  1. HYALURONIDASE [Suspect]
     Active Substance: HYALURONIDASE

REACTIONS (5)
  - Chest discomfort [None]
  - Erythema [None]
  - Back pain [None]
  - Muscle spasms [None]
  - Throat tightness [None]

NARRATIVE: CASE EVENT DATE: 20140324
